FAERS Safety Report 12648618 (Version 4)
Quarter: 2016Q3

REPORT INFORMATION
  Report Type: Report from Study
  Country: US (occurrence: DO)
  Receive Date: 20160812
  Receipt Date: 20160902
  Transmission Date: 20161109
  Serious: Yes (Hospitalization)
  Sender: FDA-Public Use
  Company Number: US-BIOGEN-2016BI00270080

PATIENT
  Age: 66 Year
  Sex: Male

DRUGS (2)
  1. TYSABRI [Suspect]
     Active Substance: NATALIZUMAB
     Indication: MULTIPLE SCLEROSIS
     Route: 042
  2. TYSABRI [Suspect]
     Active Substance: NATALIZUMAB
     Route: 065
     Dates: start: 20141201

REACTIONS (8)
  - Urinary tract infection [Recovered/Resolved]
  - Pulmonary thrombosis [Unknown]
  - Asthenia [Unknown]
  - Pneumonia [Unknown]
  - Hypertension [Unknown]
  - Abasia [Unknown]
  - Dysstasia [Unknown]
  - Hypotension [Unknown]

NARRATIVE: CASE EVENT DATE: 201607
